FAERS Safety Report 13536745 (Version 1)
Quarter: 2017Q2

REPORT INFORMATION
  Report Type: Report from Study
  Country: US (occurrence: US)
  Receive Date: 20170511
  Receipt Date: 20170511
  Transmission Date: 20170830
  Serious: Yes (Hospitalization)
  Sender: FDA-Public Use
  Company Number: US-TAIHO ONCOLOGY INC-EU-2017-00744

PATIENT
  Age: 68 Year
  Sex: Female
  Weight: 64.92 kg

DRUGS (4)
  1. LEVOTHYROXINE. [Concomitant]
     Active Substance: LEVOTHYROXINE
     Indication: THYROID DISORDER
     Dosage: NI
  2. OXYCODONE [Concomitant]
     Active Substance: OXYCODONE
     Dosage: NI
  3. LONSURF [Suspect]
     Active Substance: TIPIRACIL HYDROCHLORIDE\TRIFLURIDINE
     Indication: COLON CANCER METASTATIC
     Dosage: CYCLE 3, 3 PILLS IN THE MORNING AND 3 PILLS AT NIGHT
     Route: 048
  4. ATIVAN [Concomitant]
     Active Substance: LORAZEPAM
     Indication: ANXIETY
     Dosage: NI

REACTIONS (12)
  - Delusion [Unknown]
  - Urinary retention [Unknown]
  - Colitis [Unknown]
  - Red blood cell count decreased [Unknown]
  - Bone marrow failure [Unknown]
  - Malaise [Unknown]
  - Blood pressure decreased [Unknown]
  - Physical disability [Unknown]
  - Device related infection [Unknown]
  - Feeding disorder [Unknown]
  - Haemorrhage [Unknown]
  - Staphylococcal bacteraemia [Unknown]

NARRATIVE: CASE EVENT DATE: 201703
